FAERS Safety Report 8464532-1 (Version None)
Quarter: 2012Q2

REPORT INFORMATION
  Report Type: 
  Country: None (occurrence: None)
  Receive Date: 20120323
  Receipt Date: 20111018
  Transmission Date: 20120825
  Serious: Yes (Other)
  Sender: FDA-Public Use
  Company Number: 163-21880-11102030

PATIENT
  Age: 88 Year
  Sex: Female

DRUGS (4)
  1. B-12 (CYANOCOBALAMIN) [Concomitant]
  2. LIPITOR [Concomitant]
  3. PROCRIT [Concomitant]
  4. LENALIDOMIDE [Suspect]
     Indication: MYELODYSPLASTIC SYNDROME
     Dosage: 10 MG, X 21 CAPS, PO
     Route: 048
     Dates: start: 20111003

REACTIONS (4)
  - SWELLING [None]
  - HAEMATOCHEZIA [None]
  - BLOOD COUNT ABNORMAL [None]
  - DIARRHOEA [None]
